FAERS Safety Report 5733480-X (Version None)
Quarter: 2008Q2

REPORT INFORMATION
  Report Type: 
  Country: None (occurrence: None)
  Receive Date: 20080509
  Receipt Date: 20080421
  Transmission Date: 20081010
  Serious: Yes (Hospitalization)
  Sender: FDA-Public Use
  Company Number: SE-MERCK-0801SWE00036

PATIENT
  Age: 69 Year
  Sex: Male

DRUGS (1)
  1. COZAAR [Suspect]
     Indication: HYPERTENSION
     Route: 048
     Dates: start: 20070901, end: 20071201

REACTIONS (7)
  - ANOREXIA [None]
  - ANXIETY [None]
  - BLOOD PRESSURE INCREASED [None]
  - CAUDA EQUINA SYNDROME [None]
  - DYSPHONIA [None]
  - PRODUCTIVE COUGH [None]
  - WEIGHT DECREASED [None]
